FAERS Safety Report 5916989-5 (Version None)
Quarter: 2008Q4

REPORT INFORMATION
  Report Type: 
  Country: None (occurrence: None)
  Receive Date: 20081013
  Receipt Date: 20081002
  Transmission Date: 20090506
  Serious: Yes (Other)
  Sender: FDA-Public Use
  Company Number: GR-GENENTECH-269493

PATIENT
  Age: 69 Year
  Sex: Female

DRUGS (2)
  1. TRASTUZUMAB [Suspect]
     Indication: BREAST CANCER
     Dosage: 6 MG/KG, Q3W
     Dates: start: 20040301
  2. CAPECITABINE [Suspect]
     Indication: BREAST CANCER
     Dosage: 1000 MG/M2, BID
     Route: 048
     Dates: start: 20040301

REACTIONS (3)
  - BLOOD CHOLESTEROL INCREASED [None]
  - HYPERTRIGLYCERIDAEMIA [None]
  - PALMAR-PLANTAR ERYTHRODYSAESTHESIA SYNDROME [None]
